FAERS Safety Report 5861398-0 (Version None)
Quarter: 2008Q3

REPORT INFORMATION
  Report Type: 
  Country: None (occurrence: None)
  Receive Date: 20080827
  Receipt Date: 20080507
  Transmission Date: 20090109
  Serious: No
  Sender: FDA-Public Use
  Company Number: US-ABBOTT-08P-163-0448079-00

PATIENT
  Age: 79 Year
  Sex: Female
  Weight: 89.892 kg

DRUGS (2)
  1. COATED PDS [Suspect]
     Indication: HIGH DENSITY LIPOPROTEIN DECREASED
     Dosage: 2- 500MG TABLETS ONE TIME DAILY
     Route: 048
     Dates: start: 20080301
  2. LEVOTHYROXINE SODIUM [Concomitant]
     Indication: THYROID DISORDER
     Route: 048

REACTIONS (1)
  - FLUSHING [None]
